FAERS Safety Report 24750056 (Version 1)
Quarter: 2024Q4

REPORT INFORMATION
  Report Type: Spontaneous
  Country: US (occurrence: US)
  Receive Date: 20241218
  Receipt Date: 20241218
  Transmission Date: 20250115
  Serious: No
  Sender: SANOFI AVENTIS
  Company Number: US-SA-2024SA370712

PATIENT
  Age: 56 Year
  Sex: Male
  Weight: 76.36 kg

DRUGS (5)
  1. DUPIXENT [Suspect]
     Active Substance: DUPILUMAB
     Indication: Nasal polyps
     Dosage: 300 MG, QOW
     Route: 058
  2. ASPIRIN [Concomitant]
     Active Substance: ASPIRIN
  3. REPATHA [Concomitant]
     Active Substance: EVOLOCUMAB
  4. METOPROLOL TARTRATE [Concomitant]
     Active Substance: METOPROLOL TARTRATE
  5. PRASUGREL HYDROCHLORIDE [Concomitant]
     Active Substance: PRASUGREL HYDROCHLORIDE

REACTIONS (12)
  - Sinus congestion [Recovered/Resolved]
  - Sinusitis [Recovered/Resolved]
  - Facial pain [Recovered/Resolved]
  - Condition aggravated [Recovered/Resolved]
  - Ear pain [Recovered/Resolved]
  - Condition aggravated [Recovered/Resolved]
  - Facial discomfort [Recovered/Resolved]
  - Condition aggravated [Recovered/Resolved]
  - Ear discomfort [Recovered/Resolved]
  - Condition aggravated [Recovered/Resolved]
  - Injection site pain [Unknown]
  - Injection site swelling [Unknown]

NARRATIVE: CASE EVENT DATE: 20241101
